FAERS Safety Report 8004391-4 (Version None)
Quarter: 2011Q4

REPORT INFORMATION
  Report Type: 
  Country: None (occurrence: None)
  Receive Date: 20111223
  Receipt Date: 20111213
  Transmission Date: 20120403
  Serious: Yes (Other)
  Sender: FDA-Public Use
  Company Number: BR-AMGEN-BRASP2011067152

PATIENT
  Age: 25 Year
  Sex: Female

DRUGS (2)
  1. VOLTAREN [Concomitant]
     Indication: PRODUCT USED FOR UNKNOWN INDICATION
     Dosage: 50 MG, 1X/DAY
  2. ENBREL [Suspect]
     Indication: PSORIATIC ARTHROPATHY
     Dosage: 50 MG, ONCE WEEKLY
     Route: 058
     Dates: start: 20100901, end: 20110901

REACTIONS (1)
  - PSORIATIC ARTHROPATHY [None]
